FAERS Safety Report 5811296-3 (Version None)
Quarter: 2008Q3

REPORT INFORMATION
  Report Type: 
  Country: None (occurrence: None)
  Receive Date: 20080711
  Receipt Date: 20070926
  Transmission Date: 20090109
  Serious: Yes (Other)
  Sender: FDA-Public Use
  Company Number: PHEH2007US10398

PATIENT
  Age: 3 Year
  Sex: Male

DRUGS (1)
  1. TRILEPTAL [Suspect]
     Dosage: 6 ML, ORAL
     Route: 048
     Dates: start: 20060824, end: 20070718

REACTIONS (3)
  - DISORIENTATION [None]
  - DIZZINESS [None]
  - DYSSTASIA [None]
